FAERS Safety Report 5279560-7 (Version None)
Quarter: 2007Q1

REPORT INFORMATION
  Report Type: 
  Country: None (occurrence: None)
  Receive Date: 20070323
  Receipt Date: 20070319
  Transmission Date: 20070707
  Serious: Yes (Death)
  Sender: FDA-Public Use
  Company Number: 2007-01451

PATIENT
  Age: 43 Year

DRUGS (2)
  1. NIFEDIPINE ER (WATSON LABORATORIES)(NIFEDIPINE) TABLET (EXTENDED RELEA [Suspect]
  2. DIPHENHYDRAMINE HCL [Suspect]

REACTIONS (1)
  - DEATH [None]
